FAERS Safety Report 5910874-0 (Version None)
Quarter: 2008Q4

REPORT INFORMATION
  Report Type: 
  Country: None (occurrence: None)
  Receive Date: 20081007
  Receipt Date: 20080610
  Transmission Date: 20090506
  Serious: No
  Sender: FDA-Public Use
  Company Number: US-ASTRAZENECA-2008UW11601

PATIENT
  Age: 76 Year
  Sex: Female
  Weight: 81.2 kg

DRUGS (15)
  1. ARIMIDEX [Suspect]
     Indication: BREAST CANCER
     Route: 048
     Dates: start: 20080604
  2. COZAAR [Concomitant]
  3. HYDROZOLINE HYDROCHLORIDE [Concomitant]
  4. ISOSORB [Concomitant]
  5. METOPROLOL TARTRATE [Concomitant]
  6. MERAPAX [Concomitant]
  7. SPIRONOLACTONE [Concomitant]
  8. SIMVASTATIN [Concomitant]
  9. CALCIUM [Concomitant]
  10. VITAMIN E [Concomitant]
  11. CENTRUM VITAMINS [Concomitant]
  12. VITAMIN B-12 [Concomitant]
  13. MAGNESIUM OXIDE [Concomitant]
  14. VITAMIN D [Concomitant]
  15. ASPIRIN [Concomitant]

REACTIONS (2)
  - DIZZINESS [None]
  - VERTIGO [None]
